FAERS Safety Report 7686848-9 (Version None)
Quarter: 2011Q3

REPORT INFORMATION
  Report Type: 
  Country: None (occurrence: None)
  Receive Date: 20110816
  Receipt Date: 20110808
  Transmission Date: 20111222
  Serious: Yes (Hospitalization, Other)
  Sender: FDA-Public Use
  Company Number: US-ROCHE-796410

PATIENT
  Sex: Female

DRUGS (1)
  1. CAPECITABINE [Suspect]
     Dosage: 2 WEEKS ON AND 1 WEEK OFF IN THE BEGNING OF APRIL 2011
     Route: 048
     Dates: start: 20110401, end: 20110801

REACTIONS (4)
  - SKIN DISCOLOURATION [None]
  - METASTASES TO STOMACH [None]
  - DEHYDRATION [None]
  - MOUTH HAEMORRHAGE [None]
